FAERS Safety Report 6739002-9 (Version None)
Quarter: 2010Q2

REPORT INFORMATION
  Report Type: 
  Country: None (occurrence: None)
  Receive Date: 20100524
  Receipt Date: 20100524
  Transmission Date: 20101027
  Serious: Yes (Other)
  Sender: FDA-Public Use
  Company Number: None

PATIENT
  Age: 43 Year
  Sex: Female
  Weight: 58.9676 kg

DRUGS (1)
  1. TOPIRAMATE [Suspect]
     Indication: TREMOR
     Dosage: 1 TABLET -50 MG- ONCE DAILY PO
     Route: 048
     Dates: start: 20100504, end: 20100508

REACTIONS (3)
  - EYE PAIN [None]
  - VISION BLURRED [None]
  - VISUAL IMPAIRMENT [None]
